FAERS Safety Report 13787507 (Version 2)
Quarter: 2017Q4

REPORT INFORMATION
  Report Type: Spontaneous
  Country: US (occurrence: US)
  Receive Date: 20170725
  Receipt Date: 20171010
  Transmission Date: 20180320
  Serious: No
  Sender: FDA-Public Use
  Company Number: US-JNJFOC-20170529300

PATIENT
  Age: 67 Year
  Sex: Female
  Weight: 61.24 kg

DRUGS (4)
  1. TYLENOL REGULAR STRENGTH [Suspect]
     Active Substance: ACETAMINOPHEN
     Indication: PROCEDURAL PAIN
     Dosage: ALTERNATING WITH IBUPROFEN
     Route: 048
  2. IBUPROFEN. [Suspect]
     Active Substance: IBUPROFEN
     Indication: PROCEDURAL PAIN
     Dosage: 2 TABS X 1 DOSE AT AT 1229H
     Route: 048
     Dates: start: 20170201
  3. IBUPROFEN. [Suspect]
     Active Substance: IBUPROFEN
     Indication: PROCEDURAL PAIN
     Dosage: ALTERNATING WITH TYLENOL
     Route: 048
  4. TYLENOL REGULAR STRENGTH [Suspect]
     Active Substance: ACETAMINOPHEN
     Indication: PROCEDURAL PAIN
     Dosage: STRENGTH: 325 MG (2 TABLETS), AT 1229H
     Route: 048
     Dates: start: 20170201

REACTIONS (2)
  - Off label use [Unknown]
  - Product use in unapproved indication [Unknown]

NARRATIVE: CASE EVENT DATE: 20170201
